FAERS Safety Report 6855801-7 (Version None)
Quarter: 2010Q3

REPORT INFORMATION
  Report Type: 
  Country: None (occurrence: None)
  Receive Date: 20100719
  Receipt Date: 20100618
  Transmission Date: 20110219
  Serious: No
  Sender: FDA-Public Use
  Company Number: US-BAYER-201017109BCC

PATIENT
  Sex: Female

DRUGS (4)
  1. ALEVE (CAPLET) [Suspect]
     Indication: PROCEDURAL PAIN
     Route: 048
     Dates: start: 20100401
  2. HYDROCODONE [Concomitant]
     Route: 065
  3. IBUPROFEN [Concomitant]
     Route: 065
  4. TYLENOL [Concomitant]
     Route: 065

REACTIONS (1)
  - PROCEDURAL PAIN [None]
